FAERS Safety Report 20081371 (Version 1)
Quarter: 2021Q4

REPORT INFORMATION
  Report Type: Spontaneous
  Country: NL (occurrence: NL)
  Receive Date: 20211117
  Receipt Date: 20211117
  Transmission Date: 20220303
  Serious: Yes (Hospitalization, Other)
  Sender: FDA-Public Use
  Company Number: NL-BAYER-2021A247038

PATIENT
  Age: 38 Year
  Sex: Female

DRUGS (1)
  1. LEVONORGESTREL [Suspect]
     Active Substance: LEVONORGESTREL
     Route: 015

REACTIONS (15)
  - Heavy menstrual bleeding [None]
  - Loss of consciousness [None]
  - Device dislocation [None]
  - Blood loss anaemia [None]
  - Hormone level abnormal [None]
  - Polymenorrhagia [None]
  - Panic reaction [None]
  - Feeling abnormal [None]
  - Gait inability [None]
  - Quality of life decreased [None]
  - Asthenia [None]
  - Fibroma [None]
  - Fatigue [None]
  - Crying [None]
  - Loss of personal independence in daily activities [None]
